FAERS Safety Report 9565616 (Version 3)
Quarter: 2013Q4

REPORT INFORMATION
  Report Type: Spontaneous
  Country: AU (occurrence: AU)
  Receive Date: 20130930
  Receipt Date: 20131004
  Transmission Date: 20140711
  Serious: Yes (Hospitalization, Other)
  Sender: FDA-Public Use
  Company Number: AU-PFIZER INC-2013264399

PATIENT
  Age: 64 Year
  Sex: Male
  Weight: 147 kg

DRUGS (19)
  1. ROSUVASTATIN [Concomitant]
  2. NOVORAPID [Concomitant]
  3. SOTALOL [Concomitant]
  4. CARVEDILOL [Concomitant]
  5. INSPRA [Suspect]
     Dosage: 50 MG, DAILY
     Dates: start: 20110927, end: 20130101
  6. METFORMIN HCL [Suspect]
  7. CANDESARTAN CILEXETIL [Suspect]
  8. FRUSEMIDE [Suspect]
  9. GLICLAZIDE [Suspect]
  10. PERHEXILINE MALEATE [Suspect]
  11. COPLAVIX [Concomitant]
  12. DIGOXIN [Concomitant]
  13. EZETIMIBE [Concomitant]
  14. HYDRALAZINE HYDROCHLORIDE [Concomitant]
     Dosage: 50 MG, DAILY
  15. INSULIN [Concomitant]
  16. IVABRADINE [Concomitant]
  17. NICORANDIL [Concomitant]
     Dosage: 2 DF, DAILY
  18. PRAZOSIN HYDROCHLORIDE [Concomitant]
  19. QUINAPRIL HYDROCHLORIDE [Concomitant]
     Dosage: 20 MG, DAILY

REACTIONS (2)
  - Renal failure acute [Recovered/Resolved]
  - Presyncope [Recovered/Resolved]
